FAERS Safety Report 14980540 (Version 3)
Quarter: 2018Q3

REPORT INFORMATION
  Report Type: Report from Study
  Country: BR (occurrence: BR)
  Receive Date: 20180606
  Receipt Date: 20180910
  Transmission Date: 20181010
  Serious: Yes (Hospitalization, Other)
  Sender: FDA-Public Use
  Company Number: BR-UCBSA-2017042431

PATIENT
  Sex: Male
  Weight: 25 kg

DRUGS (5)
  1. FLIXOTIDE [Concomitant]
     Active Substance: FLUTICASONE PROPIONATE
     Indication: ASTHMA
     Dosage: UNK, 2X/DAY (BID)
     Route: 048
     Dates: start: 201804
  2. TOPIRAMATE. [Concomitant]
     Active Substance: TOPIRAMATE
     Indication: SEIZURE
     Dosage: UNK, 2X/DAY (BID)
     Route: 048
     Dates: start: 201802
  3. RIVOTRIL [Concomitant]
     Active Substance: CLONAZEPAM
     Indication: PRODUCT USED FOR UNKNOWN INDICATION
  4. RISPERIDONE. [Concomitant]
     Active Substance: RISPERIDONE
     Indication: AUTISM SPECTRUM DISORDER
     Dosage: UNK, 2X/DAY (BID)
     Route: 048
     Dates: start: 2017
  5. LEVETIRACETAM. [Suspect]
     Active Substance: LEVETIRACETAM
     Indication: EPILEPSY
     Dosage: 6 ML, 2X/DAY (BID)
     Route: 048
     Dates: start: 201702

REACTIONS (7)
  - Fall [Unknown]
  - Head injury [Unknown]
  - Infection [Unknown]
  - Drug effect incomplete [Unknown]
  - Ear infection [Recovered/Resolved]
  - Seizure [Not Recovered/Not Resolved]
  - Pneumonia [Unknown]

NARRATIVE: CASE EVENT DATE: 2017
